FAERS Safety Report 13316152 (Version 2)
Quarter: 2017Q2

REPORT INFORMATION
  Report Type: Spontaneous
  Country: US (occurrence: US)
  Receive Date: 20170310
  Receipt Date: 20170403
  Transmission Date: 20170830
  Serious: Yes (Other)
  Sender: FDA-Public Use
  Company Number: ALCN2017US001821

PATIENT
  Age: 85 Year
  Sex: Female
  Weight: 75.75 kg

DRUGS (3)
  1. TRAVATAN Z [Suspect]
     Active Substance: TRAVOPROST
     Indication: GLAUCOMA
     Dosage: UNK
     Route: 047
     Dates: end: 2016
  2. ARTIFICIAL TEARS [Concomitant]
     Active Substance: GLYCERIN\HYPROMELLOSES\POLYETHYLENE GLYCOL 400
     Indication: PRODUCT USED FOR UNKNOWN INDICATION
     Dosage: UNK
     Route: 047
  3. ERYTHROMYCIN. [Concomitant]
     Active Substance: ERYTHROMYCIN
     Indication: PRODUCT USED FOR UNKNOWN INDICATION
     Route: 047

REACTIONS (2)
  - Cataract [Unknown]
  - Drug ineffective [Unknown]
